FAERS Safety Report 16989803 (Version 1)
Quarter: 2019Q4

REPORT INFORMATION
  Report Type: Spontaneous
  Country: AU (occurrence: AU)
  Receive Date: 20191104
  Receipt Date: 20191104
  Transmission Date: 20200122
  Serious: Yes (Other)
  Sender: FDA-Public Use
  Company Number: AU-PFIZER INC-2017457215

PATIENT
  Sex: Female

DRUGS (3)
  1. NEURONTIN [Suspect]
     Active Substance: GABAPENTIN
     Dosage: 500 MG, UNK
  2. NEURONTIN [Suspect]
     Active Substance: GABAPENTIN
     Dosage: 100 MG, UNK
  3. NEURONTIN [Suspect]
     Active Substance: GABAPENTIN
     Indication: GASTROOESOPHAGEAL REFLUX DISEASE
     Dosage: 100 MG, UNK

REACTIONS (12)
  - Withdrawal syndrome [Unknown]
  - Drug ineffective for unapproved indication [Unknown]
  - Sedation [Unknown]
  - Feeling abnormal [Unknown]
  - Palpitations [Unknown]
  - Depression [Unknown]
  - Memory impairment [Unknown]
  - Mental status changes [Unknown]
  - Off label use [Unknown]
  - Mutism [Unknown]
  - Drug dependence [Unknown]
  - Fatigue [Unknown]
